FAERS Safety Report 17460445 (Version 1)
Quarter: 2020Q1

REPORT INFORMATION
  Report Type: Spontaneous
  Country: CN (occurrence: CN)
  Receive Date: 20200225
  Receipt Date: 20200225
  Transmission Date: 20200409
  Serious: Yes (Other)
  Sender: FDA-Public Use
  Company Number: CN-BAXTER-2020BAX003804

PATIENT
  Age: 56 Year
  Sex: Female
  Weight: 64 kg

DRUGS (19)
  1. ENDOXAN [Suspect]
     Active Substance: CYCLOPHOSPHAMIDE
     Dosage: THIRD CHEMOTHERAPY; ENDOXAN 640 MG + NS 35 ML
     Route: 042
     Dates: start: 20191217, end: 20191217
  2. 0.9% SODIUM CHLORIDE INJECTION [Suspect]
     Active Substance: SODIUM CHLORIDE
     Dosage: THIRD CHEMOTHERAPY; ENDOXAN 640 MG + NS 35 ML
     Route: 042
     Dates: start: 20191217, end: 20191217
  3. AIDASHENG [Suspect]
     Active Substance: EPIRUBICIN HYDROCHLORIDE
     Dosage: DOSE RE-INTRODUCED; AIDASHENG + NS
     Route: 041
  4. AI SU [Suspect]
     Active Substance: DOCETAXEL
     Indication: BREAST CANCER FEMALE
     Dosage: FIRST AND SECOND CHEMOTHERAPY; AI SU + NS
     Route: 041
  5. 0.9% SODIUM CHLORIDE INJECTION [Suspect]
     Active Substance: SODIUM CHLORIDE
     Dosage: THIRD CHEMOTHERAPY; AIDASHENG 96 MG + NS 100ML
     Route: 041
     Dates: start: 20191217, end: 20191217
  6. 0.9% SODIUM CHLORIDE INJECTION [Suspect]
     Active Substance: SODIUM CHLORIDE
     Dosage: FIRST AND SECOND CHEMOTHERAPY; AI SU + NS
     Route: 041
  7. 0.9% SODIUM CHLORIDE INJECTION [Suspect]
     Active Substance: SODIUM CHLORIDE
     Dosage: DOSE RE-INTRODUCED; ENDOXAN + NS
     Route: 042
  8. AIDASHENG [Suspect]
     Active Substance: EPIRUBICIN HYDROCHLORIDE
     Indication: BREAST CANCER FEMALE
     Dosage: FIRST AND SECOND CHEMOTHERAPY; AIDASHENG + NS
     Route: 041
  9. JINYOULI XINRUIBAI [Concomitant]
     Indication: PROPHYLAXIS
     Route: 030
     Dates: start: 20191218
  10. ENDOXAN [Suspect]
     Active Substance: CYCLOPHOSPHAMIDE
     Dosage: DOSE RE-INTRODUCED, ENDOXAN + NS
     Route: 042
  11. 0.9% SODIUM CHLORIDE INJECTION [Suspect]
     Active Substance: SODIUM CHLORIDE
     Dosage: FIRST AND SECOND CHEMOTHERAPY; AIDASHENG + NS
     Route: 041
  12. 0.9% SODIUM CHLORIDE INJECTION [Suspect]
     Active Substance: SODIUM CHLORIDE
     Dosage: DOSE RE-INTRODUCED; AIDASHENG + NS
     Route: 041
  13. AI SU [Suspect]
     Active Substance: DOCETAXEL
     Dosage: DOSE RE-INTRODUCED; AI SU + NS
     Route: 041
  14. AIDASHENG [Suspect]
     Active Substance: EPIRUBICIN HYDROCHLORIDE
     Dosage: THIRD CHEMOTHERAPY; AIDASHENG 96 MG + NS 100 ML
     Route: 041
     Dates: start: 20191217, end: 20191217
  15. 0.9% SODIUM CHLORIDE INJECTION [Suspect]
     Active Substance: SODIUM CHLORIDE
     Indication: MEDICATION DILUTION
     Dosage: FIRST AND SECOND CHEMOTHERAPY; ENDOXAN + NS
     Route: 042
  16. ENDOXAN [Suspect]
     Active Substance: CYCLOPHOSPHAMIDE
     Indication: BREAST CANCER FEMALE
     Dosage: FIRST AND SECOND CHEMOTHERAPY; ENDOXAN + NS (NORMAL SALINE)
     Route: 042
  17. 0.9% SODIUM CHLORIDE INJECTION [Suspect]
     Active Substance: SODIUM CHLORIDE
     Dosage: THIRD CHEMOTHERAPY; AI SU 96 MG + NS 250 ML
     Route: 041
     Dates: start: 20191217, end: 20191217
  18. 0.9% SODIUM CHLORIDE INJECTION [Suspect]
     Active Substance: SODIUM CHLORIDE
     Dosage: DOSE RE-INTRODUCED; AI SU + NS
     Route: 041
  19. AI SU [Suspect]
     Active Substance: DOCETAXEL
     Dosage: THIRD CHEMOTHERAPY; AI SU 96 MG + NS 250 ML
     Route: 041
     Dates: start: 20191217, end: 20191217

REACTIONS (1)
  - Agranulocytosis [Recovering/Resolving]

NARRATIVE: CASE EVENT DATE: 20191223
